FAERS Safety Report 19451790 (Version 1)
Quarter: 2021Q2

REPORT INFORMATION
  Report Type: Spontaneous
  Country: IL (occurrence: IL)
  Receive Date: 20210623
  Receipt Date: 20210623
  Transmission Date: 20210717
  Serious: Yes (Hospitalization)
  Sender: FDA-Public Use
  Company Number: IL-TEVA-2021-IL-1924471

PATIENT
  Age: 43 Year
  Sex: Female

DRUGS (5)
  1. PREDNISONE. [Suspect]
     Active Substance: PREDNISONE
     Indication: EOSINOPHILIC CELLULITIS
     Dosage: 40 MILLIGRAM DAILY;
     Route: 048
  2. CYCLOSPORINE. [Suspect]
     Active Substance: CYCLOSPORINE
     Indication: EOSINOPHILIC CELLULITIS
     Dosage: 500 MILLIGRAM DAILY;
     Route: 048
  3. PREDNISONE. [Suspect]
     Active Substance: PREDNISONE
     Indication: EOSINOPHILIC CELLULITIS
     Dosage: 80 MG DAILY
     Route: 048
  4. METHOTREXATE. [Suspect]
     Active Substance: METHOTREXATE
     Indication: EOSINOPHILIC CELLULITIS
     Route: 048
  5. MYCOPHENOLATE MOFETIL. [Suspect]
     Active Substance: MYCOPHENOLATE MOFETIL
     Indication: EOSINOPHILIC CELLULITIS
     Dosage: 2 GRAM DAILY;
     Route: 065

REACTIONS (4)
  - Adrenal insufficiency [Unknown]
  - Drug ineffective [Unknown]
  - Hypertension [Unknown]
  - Hirsutism [Unknown]
